FAERS Safety Report 9394322 (Version 2)
Quarter: 2013Q3

REPORT INFORMATION
  Report Type: Spontaneous
  Country: ES (occurrence: ES)
  Receive Date: 20130711
  Receipt Date: 20130719
  Transmission Date: 20140515
  Serious: Yes (Other)
  Sender: FDA-Public Use
  Company Number: ES-RANBAXY-2013RR-71046

PATIENT
  Age: 84 Year
  Sex: Female

DRUGS (4)
  1. ONDANSETRON [Suspect]
     Indication: NAUSEA
     Dosage: 4 MG
     Route: 065
  2. ONDANSETRON [Interacting]
     Indication: VOMITING
  3. MIRTAZAPINE [Interacting]
     Indication: INSOMNIA
     Dosage: UNK
     Route: 065
  4. MIRTAZAPINE [Interacting]
     Indication: DEPRESSION

REACTIONS (6)
  - Drug interaction [Recovering/Resolving]
  - Vertigo [Recovering/Resolving]
  - Nausea [Unknown]
  - Vomiting [Recovering/Resolving]
  - Diplopia [Unknown]
  - Drug ineffective [Recovered/Resolved]
